FAERS Safety Report 7213802-3 (Version None)
Quarter: 2011Q1

REPORT INFORMATION
  Report Type: 
  Country: None (occurrence: None)
  Receive Date: 20110106
  Receipt Date: 20110103
  Transmission Date: 20110831
  Serious: Yes (Other)
  Sender: FDA-Public Use
  Company Number: DE-TEVA-261871GER

PATIENT
  Age: 17 Week
  Sex: Female

DRUGS (3)
  1. PROPRANOLOL [Suspect]
  2. CEFUROXIME [Concomitant]
     Indication: INFECTION
  3. PROPRANOLOL [Suspect]
     Indication: HAEMANGIOMA
     Dosage: 1 MG/KG/DAY DIVIDED IN THREE DOSES
     Route: 048

REACTIONS (1)
  - HYPERKALAEMIA [None]
